FAERS Safety Report 7692195-1 (Version None)
Quarter: 2011Q3

REPORT INFORMATION
  Report Type: 
  Country: None (occurrence: None)
  Receive Date: 20110818
  Receipt Date: 20110809
  Transmission Date: 20111222
  Serious: Yes (Hospitalization)
  Sender: FDA-Public Use
  Company Number: US-CEPHALON-2011003085

PATIENT
  Sex: Female
  Weight: 55 kg

DRUGS (1)
  1. PROVIGIL [Suspect]
     Indication: NARCOLEPSY
     Route: 048
     Dates: start: 20080101, end: 20110101

REACTIONS (2)
  - LARYNGEAL CANCER [None]
  - DYSPHONIA [None]
